FAERS Safety Report 7672129-6 (Version None)
Quarter: 2011Q3

REPORT INFORMATION
  Report Type: 
  Country: None (occurrence: None)
  Receive Date: 20110809
  Receipt Date: 20110804
  Transmission Date: 20111222
  Serious: Yes (Hospitalization)
  Sender: FDA-Public Use
  Company Number: FR-PFIZER INC-2011178395

PATIENT
  Age: 53 Year
  Sex: Female

DRUGS (7)
  1. DIPRIVAN [Concomitant]
     Indication: ANAESTHESIA
     Dosage: 1 DF, UNK
     Route: 042
     Dates: start: 20110530, end: 20110530
  2. CEFAMANDOLE SODIUM [Suspect]
     Indication: PREMEDICATION
     Dosage: ONE INJECTION, IN THE EVENING
     Dates: start: 20110529, end: 20110529
  3. TRAMADOL HCL [Suspect]
     Dosage: UNK
     Route: 048
     Dates: start: 20110529, end: 20110603
  4. ACUPAN [Suspect]
     Dosage: UNK
     Route: 048
     Dates: start: 20110529, end: 20110603
  5. NIMBEX [Concomitant]
     Indication: ANAESTHESIA
     Dosage: 1 DF, UNK
     Route: 042
     Dates: start: 20110530, end: 20110530
  6. SOLU-MEDROL [Suspect]
     Indication: PREMEDICATION
     Dosage: ONE INJECTION, IN THE EVENING
     Route: 042
     Dates: start: 20110530, end: 20110530
  7. ULTIVA [Concomitant]
     Indication: ANAESTHESIA
     Dosage: 1 DF, UNK
     Route: 042
     Dates: start: 20110530, end: 20110530

REACTIONS (1)
  - ACUTE GENERALISED EXANTHEMATOUS PUSTULOSIS [None]
